FAERS Safety Report 6072346-5 (Version None)
Quarter: 2009Q1

REPORT INFORMATION
  Report Type: 
  Country: None (occurrence: None)
  Receive Date: 20090210
  Receipt Date: 20090130
  Transmission Date: 20090719
  Serious: Yes (Other)
  Sender: FDA-Public Use
  Company Number: PHEH2009US01330

PATIENT
  Sex: Male

DRUGS (3)
  1. DIOVAN [Suspect]
     Dosage: 160 MG, UNK
  2. TOPROL-XL [Concomitant]
     Dosage: 50 MG, UNK
  3. SYNTHROID [Concomitant]
     Dosage: 75 MG, UNK

REACTIONS (2)
  - JOINT SWELLING [None]
  - RENAL DISORDER [None]
